FAERS Safety Report 12631765 (Version 2)
Quarter: 2016Q3

REPORT INFORMATION
  Report Type: Spontaneous
  Country: US (occurrence: US)
  Receive Date: 20160808
  Receipt Date: 20160808
  Transmission Date: 20161109
  Serious: No
  Sender: FDA-Public Use
  Company Number: US-BEH-2016060951

PATIENT
  Age: 90 Year
  Sex: Female
  Weight: 58 kg

DRUGS (14)
  1. ALVESCO [Concomitant]
     Active Substance: CICLESONIDE
  2. POTASSIUM [Concomitant]
     Active Substance: POTASSIUM
  3. EPIPEN [Concomitant]
     Active Substance: EPINEPHRINE
  4. NATEGLINIDE. [Concomitant]
     Active Substance: NATEGLINIDE
  5. DILTIAZEM. [Concomitant]
     Active Substance: DILTIAZEM
  6. HIZENTRA [Suspect]
     Active Substance: HUMAN IMMUNOGLOBULIN G
     Indication: IMMUNODEFICIENCY COMMON VARIABLE
     Route: 058
  7. SIMVASTATIN. [Concomitant]
     Active Substance: SIMVASTATIN
  8. LEVALBUTEROL. [Concomitant]
     Active Substance: LEVALBUTEROL
  9. ACETAMINOPHEN. [Concomitant]
     Active Substance: ACETAMINOPHEN
  10. DIPHENHYDRAMINE. [Concomitant]
     Active Substance: DIPHENHYDRAMINE
  11. PRESERVISION [Concomitant]
     Active Substance: MINERALS\VITAMINS
  12. BENICAR [Concomitant]
     Active Substance: OLMESARTAN MEDOXOMIL
  13. LIDOCAINE. [Concomitant]
     Active Substance: LIDOCAINE
  14. RANITIDINE. [Concomitant]
     Active Substance: RANITIDINE

REACTIONS (1)
  - Bronchitis [Unknown]

NARRATIVE: CASE EVENT DATE: 20160105
